FAERS Safety Report 19719733 (Version 2)
Quarter: 2021Q4

REPORT INFORMATION
  Report Type: Spontaneous
  Country: DE (occurrence: DE)
  Receive Date: 20210818
  Receipt Date: 20211012
  Transmission Date: 20220303
  Serious: Yes (Hospitalization)
  Sender: FDA-Public Use
  Company Number: DE-ADRED-06210-01

PATIENT
  Age: 80 Year
  Sex: Female
  Weight: 168 kg

DRUGS (7)
  1. BISOPROLOL [Suspect]
     Active Substance: BISOPROLOL
     Indication: Product used for unknown indication
     Dosage: 2.5 MILLIGRAM, QD, 2.5 MG, 1-0-0-0
  2. LEVOTHYROXINE SODIUM [Concomitant]
     Active Substance: LEVOTHYROXINE SODIUM
     Dosage: 0.025 MILLIGRAM, QD, 0.025 MG, 1-0-0-0
  3. DIGITOXIN [Concomitant]
     Active Substance: DIGITOXIN
     Dosage: 0.07 MILLIGRAM, QD, 0.07 MG, 1-0-0-0
  4. TORSEMIDE [Concomitant]
     Active Substance: TORSEMIDE
     Dosage: 0.5 MILLIGRAM, BID, 10 MG, 0.5-0-0.5-0
  5. EZETIMIBE [Concomitant]
     Active Substance: EZETIMIBE
     Dosage: UNK, QD, 0-0-1-0
  6. METOPROLOL [Concomitant]
     Active Substance: METOPROLOL
     Dosage: 47.5 MILLIGRAM, BID, 47.5 MG, 1-0-1-0
  7. APIXABAN [Concomitant]
     Active Substance: APIXABAN
     Dosage: 2.5 MILLIGRAM, BID, 2.5 MG, 1-0-1-0

REACTIONS (9)
  - Tachycardia [Unknown]
  - Palpitations [Unknown]
  - Atrial fibrillation [Unknown]
  - Arrhythmia [Unknown]
  - General physical health deterioration [Unknown]
  - Weight bearing difficulty [Unknown]
  - Malaise [Unknown]
  - Hypotension [Unknown]
  - Product prescribing error [Unknown]
